FAERS Safety Report 22109114 (Version 1)
Quarter: 2023Q1

REPORT INFORMATION
  Report Type: Spontaneous
  Country: US (occurrence: None)
  Receive Date: 20230316
  Receipt Date: 20230316
  Transmission Date: 20230417
  Serious: Yes (Other)
  Sender: FDA-Public Use
  Company Number: None

PATIENT
  Age: 79 Year
  Sex: Female

DRUGS (2)
  1. REPATHA [Suspect]
     Active Substance: EVOLOCUMAB
  2. REPATHA [Concomitant]
     Active Substance: EVOLOCUMAB

REACTIONS (3)
  - Nasopharyngitis [None]
  - Pain in extremity [None]
  - Asthenia [None]

NARRATIVE: CASE EVENT DATE: 20230314
